FAERS Safety Report 21032797 (Version 7)
Quarter: 2025Q3

REPORT INFORMATION
  Report Type: Report from Study
  Country: CA (occurrence: CA)
  Receive Date: 20220701
  Receipt Date: 20250903
  Transmission Date: 20251020
  Serious: Yes (Other)
  Sender: TAKEDA
  Company Number: CA-TAKEDA-2021TUS080319

PATIENT
  Sex: Female

DRUGS (7)
  1. VEDOLIZUMAB [Suspect]
     Active Substance: VEDOLIZUMAB
     Indication: Crohn^s disease
  2. VEDOLIZUMAB [Suspect]
     Active Substance: VEDOLIZUMAB
  3. VEDOLIZUMAB [Suspect]
     Active Substance: VEDOLIZUMAB
  4. VEDOLIZUMAB [Suspect]
     Active Substance: VEDOLIZUMAB
  5. VEDOLIZUMAB [Suspect]
     Active Substance: VEDOLIZUMAB
     Indication: Crohn^s disease
     Dosage: 108 MILLIGRAM, Q2WEEKS
     Dates: start: 20240709
  6. COLESTID [Concomitant]
     Active Substance: COLESTIPOL HYDROCHLORIDE
  7. PREDNISONE [Concomitant]
     Active Substance: PREDNISONE

REACTIONS (15)
  - Crohn^s disease [Unknown]
  - Drug ineffective [Not Recovered/Not Resolved]
  - Abdominal pain [Unknown]
  - Rhinorrhoea [Unknown]
  - Headache [Unknown]
  - Oropharyngeal pain [Unknown]
  - Tremor [Unknown]
  - Limb discomfort [Unknown]
  - Diarrhoea [Not Recovered/Not Resolved]
  - Abdominal pain upper [Unknown]
  - Stress [Unknown]
  - Hypophagia [Unknown]
  - Decreased appetite [Unknown]
  - Fatigue [Unknown]
  - Nausea [Unknown]
